FAERS Safety Report 6064710-5 (Version None)
Quarter: 2009Q1

REPORT INFORMATION
  Report Type: 
  Country: None (occurrence: None)
  Receive Date: 20090204
  Receipt Date: 20080717
  Transmission Date: 20090719
  Serious: No
  Sender: FDA-Public Use
  Company Number: A0738182A

PATIENT
  Age: 64 Year
  Sex: Female

DRUGS (9)
  1. ARIXTRA [Suspect]
     Dosage: 2.5MG PER DAY
     Route: 058
     Dates: start: 20080619, end: 20080629
  2. METFORMIN [Concomitant]
  3. JANUVIA [Concomitant]
  4. LEVOXYL [Concomitant]
  5. ZETIA [Concomitant]
  6. CRESTOR [Concomitant]
  7. CENTRUM SILVER [Concomitant]
  8. FISH OIL [Concomitant]
  9. ASCORBIC ACID [Concomitant]

REACTIONS (2)
  - HAEMATOMA [None]
  - PAIN [None]
